FAERS Safety Report 6021415-4 (Version None)
Quarter: 2008Q4

REPORT INFORMATION
  Report Type: 
  Country: None (occurrence: None)
  Receive Date: 20081229
  Receipt Date: 20081223
  Transmission Date: 20090506
  Serious: Yes (Other)
  Sender: FDA-Public Use
  Company Number: B0551826A

PATIENT
  Sex: Male

DRUGS (3)
  1. NIQUITIN CQ 21MG [Suspect]
     Indication: DRUG USE FOR UNKNOWN INDICATION
     Route: 062
  2. NAPROXEN [Suspect]
     Indication: DRUG USE FOR UNKNOWN INDICATION
     Dosage: 500MG TWICE PER DAY
     Route: 065
  3. PARACETAMOL [Concomitant]

REACTIONS (2)
  - FATIGUE [None]
  - HEPATIC ENZYME INCREASED [None]
